FAERS Safety Report 9044044 (Version 1)
Quarter: 2013Q1

REPORT INFORMATION
  Report Type: Report from Study
  Country: US (occurrence: US)
  Receive Date: 20130130
  Receipt Date: 20130130
  Transmission Date: 20140127
  Serious: No
  Sender: FDA-Public Use
  Company Number: US-ABBOTT-12P-163-0954525-00

PATIENT
  Age: 56 Year
  Sex: Female

DRUGS (12)
  1. HUMIRA 40 MG/0.8 ML PEN [Suspect]
     Indication: CROHN^S DISEASE
     Dates: start: 20120328
  2. ASACOL [Concomitant]
     Indication: CROHN^S DISEASE
     Dosage: 6 TABS DAILY
  3. PREMARIN [Concomitant]
     Indication: HORMONE REPLACEMENT THERAPY
     Dosage: 0.90MG DAILY
  4. TRAMADOL [Concomitant]
     Indication: PAIN
  5. LOMOTIL [Concomitant]
     Indication: DIARRHOEA
  6. CALCIUM PLUS [Concomitant]
     Indication: PRODUCT USED FOR UNKNOWN INDICATION
  7. VITAMIN D [Concomitant]
     Indication: PRODUCT USED FOR UNKNOWN INDICATION
     Dosage: 2 TABS DAILY
  8. MAGNESIUM [Concomitant]
     Indication: PRODUCT USED FOR UNKNOWN INDICATION
     Dosage: 2 TABS DAILY
  9. POTASSIUM CHLORIDE [Concomitant]
     Indication: PRODUCT USED FOR UNKNOWN INDICATION
     Dosage: 4 TABS DAILY
  10. FOLIC ACID [Concomitant]
     Indication: PRODUCT USED FOR UNKNOWN INDICATION
     Dosage: 1MG DAILY
  11. B12 [Concomitant]
     Indication: PRODUCT USED FOR UNKNOWN INDICATION
     Dosage: 1CC WEEKLY
     Route: 050
  12. IRON [Concomitant]
     Indication: MINERAL SUPPLEMENTATION
     Dosage: INFUSIONS; 12 WEEKS ON, 6 WEEKS OFF (CURRENTLY OFF)

REACTIONS (2)
  - Injection site rash [Not Recovered/Not Resolved]
  - Injection site haemorrhage [Not Recovered/Not Resolved]
